APPROVED DRUG PRODUCT: FARYDAK
Active Ingredient: PANOBINOSTAT LACTATE
Strength: EQ 20MG BASE
Dosage Form/Route: CAPSULE;ORAL
Application: N205353 | Product #003
Applicant: SECURA BIO INC
Approved: Feb 23, 2015 | RLD: Yes | RS: No | Type: DISCN

PATENTS:
Patent 8883842 | Expires: Jun 13, 2028
Patent 7989494 | Expires: Jan 17, 2028